FAERS Safety Report 4719445-5 (Version None)
Quarter: 2005Q3

REPORT INFORMATION
  Report Type: 
  Country: None (occurrence: None)
  Receive Date: 20050719
  Receipt Date: 20050705
  Transmission Date: 20060218
  Serious: Yes (Other)
  Sender: FDA-Public Use
  Company Number: US_0507119867

PATIENT
  Age: 24 Year
  Sex: Female
  Weight: 36 kg

DRUGS (1)
  1. ZYPREXA [Suspect]
     Indication: ANXIETY
     Dates: start: 20000201

REACTIONS (3)
  - DIABETIC KETOACIDOSIS [None]
  - PANCREATITIS [None]
  - RESPIRATORY FAILURE [None]
